FAERS Safety Report 8259157-7 (Version None)
Quarter: 2012Q2

REPORT INFORMATION
  Report Type: 
  Country: None (occurrence: None)
  Receive Date: 20120404
  Receipt Date: 20120321
  Transmission Date: 20120825
  Serious: Yes (Other)
  Sender: FDA-Public Use
  Company Number: CHPA2012US005545

PATIENT
  Sex: Female

DRUGS (1)
  1. EXCEDRIN EXTRA STRENGTH TABLETS [Suspect]
     Indication: MIGRAINE
     Dosage: UNK DF, QD
     Route: 048

REACTIONS (10)
  - INCORRECT DOSE ADMINISTERED [None]
  - WRONG TECHNIQUE IN DRUG USAGE PROCESS [None]
  - HERPES ZOSTER [None]
  - NERVOUSNESS [None]
  - GLAUCOMA [None]
  - ARTHRALGIA [None]
  - INCORRECT DRUG ADMINISTRATION DURATION [None]
  - FIBROMYALGIA [None]
  - JOINT SWELLING [None]
  - RHEUMATOID ARTHRITIS [None]
